FAERS Safety Report 24026570 (Version 3)
Quarter: 2024Q3

REPORT INFORMATION
  Report Type: Report from Study
  Country: DK (occurrence: DK)
  Receive Date: 20240628
  Receipt Date: 20240710
  Transmission Date: 20241017
  Serious: No
  Sender: ROCHE
  Company Number: DK-ROCHE-3534509

PATIENT
  Age: 48 Year
  Sex: Female

DRUGS (8)
  1. PHESGO [Suspect]
     Active Substance: HYALURONIDASE-ZZXF\PERTUZUMAB\TRASTUZUMAB
     Indication: Breast cancer
     Dosage: DOSE: 600/600 MG, MOST RECENT DOSE: 15/FEB/2024
     Route: 058
     Dates: start: 20161121, end: 20240327
  2. IBUPROFEN [Concomitant]
     Active Substance: IBUPROFEN
  3. DENOSUMAB [Concomitant]
     Active Substance: DENOSUMAB
  4. PANTOPRAZOLE [Concomitant]
     Active Substance: PANTOPRAZOLE
  5. CALCIUM\CHOLECALCIFEROL [Concomitant]
     Active Substance: CALCIUM\CHOLECALCIFEROL
  6. ONDANSETRON [Concomitant]
     Active Substance: ONDANSETRON
  7. ACETAMINOPHEN [Concomitant]
     Active Substance: ACETAMINOPHEN
  8. PREDNISOLONE [Concomitant]
     Active Substance: PREDNISOLONE

REACTIONS (1)
  - Disease progression [Unknown]

NARRATIVE: CASE EVENT DATE: 20240227
